FAERS Safety Report 23920033 (Version 1)
Quarter: 2024Q2

REPORT INFORMATION
  Report Type: Spontaneous
  Country: US (occurrence: None)
  Receive Date: 20240529
  Receipt Date: 20240529
  Transmission Date: 20240715
  Serious: Yes (Death)
  Sender: FDA-Public Use
  Company Number: None

PATIENT
  Age: 63 Year
  Sex: Male

DRUGS (2)
  1. ABIRATERONE. [Suspect]
     Active Substance: ABIRATERONE ACETATE
     Indication: Prostate cancer
     Dosage: 250 MG DAILY ORAL
     Route: 048
     Dates: start: 20240509, end: 20240528
  2. PREDNISONE [Concomitant]
     Active Substance: PREDNISONE
     Dates: start: 20240509, end: 20240528

REACTIONS (5)
  - Sepsis [None]
  - Limb injury [None]
  - Skin abrasion [None]
  - Wound secretion [None]
  - Peripheral swelling [None]

NARRATIVE: CASE EVENT DATE: 20240528
